FAERS Safety Report 9382501 (Version 1)
Quarter: 2013Q3

REPORT INFORMATION
  Report Type: Report from Study
  Country: US (occurrence: US)
  Receive Date: 20130703
  Receipt Date: 20130703
  Transmission Date: 20140515
  Serious: Yes (Hospitalization)
  Sender: FDA-Public Use
  Company Number: US-ACTELION-A-US2013-85246

PATIENT
  Age: 53 Year
  Sex: Male

DRUGS (4)
  1. VELETRI [Suspect]
     Indication: PULMONARY ARTERIAL HYPERTENSION
     Dosage: 20.5 NG/KG, PER MIN
     Route: 042
     Dates: start: 20120607
  2. LETAIRIS [Concomitant]
  3. SILDENAFIL [Concomitant]
  4. FLOLAN [Concomitant]

REACTIONS (2)
  - Hernia repair [Unknown]
  - Hernia [Unknown]
